FAERS Safety Report 16513539 (Version 4)
Quarter: 2020Q1

REPORT INFORMATION
  Report Type: Report from Study
  Country: US (occurrence: US)
  Receive Date: 20190701
  Receipt Date: 20200109
  Transmission Date: 20200409
  Serious: Yes (Hospitalization, Other)
  Sender: FDA-Public Use
  Company Number: US-ACTELION-A-NJ2018-176323

PATIENT
  Age: 60 Year
  Sex: Female
  Weight: 67.57 kg

DRUGS (4)
  1. OPSUMIT [Suspect]
     Active Substance: MACITENTAN
     Dosage: 10 MG, QD
     Route: 048
  2. OPSUMIT [Suspect]
     Active Substance: MACITENTAN
     Indication: PULMONARY HYPERTENSION
     Dosage: 10 MG, QD
     Route: 048
     Dates: start: 20180424, end: 20181129
  3. ADEMPAS [Concomitant]
     Active Substance: RIOCIGUAT
  4. CYMBALTA [Suspect]
     Active Substance: DULOXETINE HYDROCHLORIDE
     Indication: PRODUCT USED FOR UNKNOWN INDICATION
     Dosage: UNK
     Route: 065
     Dates: start: 201808

REACTIONS (32)
  - Dizziness [Unknown]
  - Crying [Unknown]
  - Depression [Unknown]
  - Pain [Unknown]
  - Palpitations [Unknown]
  - Peripheral swelling [Unknown]
  - Diarrhoea [Recovered/Resolved]
  - Dyspnoea [Unknown]
  - Headache [Unknown]
  - Muscular weakness [Unknown]
  - Vomiting [Unknown]
  - Nasopharyngitis [Unknown]
  - Anaemia [Unknown]
  - Syncope [Unknown]
  - Bronchitis [Unknown]
  - Pulmonary oedema [Unknown]
  - Arthralgia [Unknown]
  - Stress [Unknown]
  - Fluid retention [Unknown]
  - Fatigue [Unknown]
  - Swelling [Unknown]
  - Joint swelling [Unknown]
  - Pneumonia [Unknown]
  - Pyrexia [Unknown]
  - Rash [Recovering/Resolving]
  - Hypotension [Unknown]
  - Systemic lupus erythematosus [Unknown]
  - Depressed mood [Unknown]
  - Tachycardia [Recovered/Resolved]
  - Product administration error [Unknown]
  - Productive cough [Unknown]
  - Hypertension [Unknown]

NARRATIVE: CASE EVENT DATE: 201807
